FAERS Safety Report 10028804 (Version 1)
Quarter: 2014Q1

REPORT INFORMATION
  Report Type: Spontaneous
  Country: US (occurrence: US)
  Receive Date: 20140321
  Receipt Date: 20140321
  Transmission Date: 20141002
  Serious: Yes (Hospitalization)
  Sender: FDA-Public Use
  Company Number: 2014SP000824

PATIENT
  Sex: Male

DRUGS (2)
  1. LATUDA [Suspect]
     Indication: BIPOLAR I DISORDER
     Route: 048
     Dates: start: 201311, end: 201311
  2. ABILIFY [Concomitant]

REACTIONS (6)
  - Abnormal behaviour [Recovered/Resolved]
  - Joint injury [Unknown]
  - Aggression [Recovered/Resolved]
  - Imprisonment [Unknown]
  - Delusional perception [Recovered/Resolved]
  - Depersonalisation [Recovered/Resolved]
